FAERS Safety Report 8486998-3 (Version None)
Quarter: 2012Q3

REPORT INFORMATION
  Report Type: 
  Country: None (occurrence: None)
  Receive Date: 20120704
  Receipt Date: 20120629
  Transmission Date: 20120928
  Serious: Yes (Other)
  Sender: FDA-Public Use
  Company Number: PHHY2012CN056640

PATIENT
  Age: 87 Year
  Sex: Male

DRUGS (1)
  1. LESCOL [Suspect]
     Indication: PERIPHERAL ARTERIAL OCCLUSIVE DISEASE
     Dosage: 1 DF, EVERY 5 DAYS
     Route: 048
     Dates: start: 20070404, end: 20120501

REACTIONS (1)
  - GOITRE [None]
